FAERS Safety Report 11733539 (Version 1)
Quarter: 2015Q4

REPORT INFORMATION
  Report Type: Spontaneous
  Country: US (occurrence: US)
  Receive Date: 20151110
  Receipt Date: 20151110
  Transmission Date: 20160304
  Serious: No
  Sender: FDA-Public Use
  Company Number: US-ELI_LILLY_AND_COMPANY-US201112005185

PATIENT
  Age: 58 Year
  Sex: Female

DRUGS (4)
  1. FORTEO [Suspect]
     Active Substance: TERIPARATIDE
     Indication: OSTEOPOROSIS
     Dosage: UNK UNK, QD
     Route: 065
     Dates: start: 20111122
  2. FORTEO [Suspect]
     Active Substance: TERIPARATIDE
     Dosage: UNK UNK, QD
     Route: 065
  3. FORTEO [Suspect]
     Active Substance: TERIPARATIDE
     Dosage: UNK, QD
  4. FORTEO [Suspect]
     Active Substance: TERIPARATIDE
     Dosage: UNK, QD

REACTIONS (21)
  - Sleep disorder due to a general medical condition [Unknown]
  - Hypoaesthesia [Unknown]
  - Injection site mass [Unknown]
  - Injection site erythema [Unknown]
  - Chromaturia [Not Recovered/Not Resolved]
  - Fear [Unknown]
  - Incorrect route of drug administration [Recovered/Resolved]
  - Urine odour abnormal [Not Recovered/Not Resolved]
  - Pain [Unknown]
  - Urticaria [Unknown]
  - Injection site bruising [Recovering/Resolving]
  - Injection site haemorrhage [Unknown]
  - Sleep disorder due to general medical condition, insomnia type [Unknown]
  - Pain [Unknown]
  - Feeling abnormal [Unknown]
  - Nausea [Unknown]
  - Injection site pain [Unknown]
  - Productive cough [Unknown]
  - Injection site injury [Unknown]
  - Headache [Unknown]
  - Dizziness [Unknown]

NARRATIVE: CASE EVENT DATE: 20111122
